FAERS Safety Report 4446465-0 (Version None)
Quarter: 2004Q3

REPORT INFORMATION
  Report Type: 
  Country: None (occurrence: None)
  Receive Date: 20040907
  Receipt Date: 20040820
  Transmission Date: 20050211
  Serious: Yes (Hospitalization)
  Sender: FDA-Public Use
  Company Number: 170986

PATIENT
  Age: 40 Year
  Sex: Male
  Weight: 78.0187 kg

DRUGS (4)
  1. AVONEX [Suspect]
     Indication: MULTIPLE SCLEROSIS
     Dosage: 30 MCG QW IM
     Route: 030
     Dates: start: 20020801
  2. COLACE [Concomitant]
  3. BACLOFEN [Concomitant]
  4. NEURONTIN [Concomitant]

REACTIONS (13)
  - ASTHENIA [None]
  - CONDITION AGGRAVATED [None]
  - DISORIENTATION [None]
  - DIZZINESS [None]
  - EPISTAXIS [None]
  - EYE MOVEMENT DISORDER [None]
  - INFLUENZA LIKE ILLNESS [None]
  - INJECTION SITE HAEMORRHAGE [None]
  - INSOMNIA [None]
  - MOOD ALTERED [None]
  - MULTIPLE SCLEROSIS [None]
  - SENSORY DISTURBANCE [None]
  - VEIN DISORDER [None]
